FAERS Safety Report 11281569 (Version 2)
Quarter: 2015Q3

REPORT INFORMATION
  Report Type: Report from Study
  Country: DE (occurrence: DE)
  Receive Date: 20150717
  Receipt Date: 20150727
  Transmission Date: 20151125
  Serious: Yes (Hospitalization)
  Sender: FDA-Public Use
  Company Number: DE-ROCHE-1606676

PATIENT
  Age: 54 Year
  Sex: Female
  Weight: 62 kg

DRUGS (11)
  1. BASODEXAN [Concomitant]
     Dosage: DOSE NOT REQUIRED
     Route: 065
     Dates: start: 20150225
  2. CLARELUX [Concomitant]
     Dosage: DOSE NOT REQUIRED
     Route: 065
     Dates: start: 20150225
  3. CODICOMPREN [Concomitant]
     Route: 065
     Dates: start: 20150209, end: 20150228
  4. PANTOPRAZOLE [Concomitant]
     Active Substance: PANTOPRAZOLE SODIUM
     Route: 065
     Dates: start: 20150122
  5. PREDNISOLONE. [Concomitant]
     Active Substance: PREDNISOLONE
     Route: 065
     Dates: start: 20150422, end: 20150426
  6. COBIMETINIB [Suspect]
     Active Substance: COBIMETINIB
     Indication: MALIGNANT MELANOMA
     Dosage: DATE OF LAST DOSE PRIOR TO SAE: 13/MAY/2015
     Route: 048
     Dates: start: 20150128, end: 20150520
  7. VEMURAFENIB [Suspect]
     Active Substance: VEMURAFENIB
     Indication: MALIGNANT MELANOMA
     Dosage: DATE OF LAST DOSE PRIOR TO SAE: 19/MAY/2015
     Route: 048
     Dates: start: 20150128, end: 20150520
  8. IDEOS [Concomitant]
     Active Substance: CALCIUM CARBONATE\CHOLECALCIFEROL
     Route: 065
     Dates: start: 20150422
  9. HYDROCORTISONE CREME [Concomitant]
     Dosage: DOSE NOT REQUIRED
     Route: 065
     Dates: start: 20150515
  10. BRONCHICUM (GERMANY) [Concomitant]
     Dosage: DOSE UNKNOWN
     Route: 065
     Dates: start: 20150515
  11. IDEOS [Concomitant]
     Active Substance: CALCIUM CARBONATE\CHOLECALCIFEROL
     Route: 065
     Dates: start: 20150422

REACTIONS (1)
  - Organising pneumonia [Not Recovered/Not Resolved]

NARRATIVE: CASE EVENT DATE: 20150520
